FAERS Safety Report 4996211-7 (Version None)
Quarter: 2006Q2

REPORT INFORMATION
  Report Type: 
  Country: None (occurrence: None)
  Receive Date: 20060504
  Receipt Date: 20060425
  Transmission Date: 20061013
  Serious: Yes (Hospitalization)
  Sender: FDA-Public Use
  Company Number: MEDI-0004499

PATIENT
  Age: 4 Month

DRUGS (3)
  1. SYNAGIS [Suspect]
     Indication: ANTIVIRAL PROPHYLAXIS
     Dosage: 1 IN 30 D, INTRAMUSCULAR; 32 MG, 1 IN  30 D, INTRAMUSCULAR; 50 MG, 1 IN 30 D, INTRAMUSCULAR
     Route: 030
     Dates: start: 20060323, end: 20060323
  2. SYNAGIS [Suspect]
     Indication: ANTIVIRAL PROPHYLAXIS
     Dosage: 1 IN 30 D, INTRAMUSCULAR; 32 MG, 1 IN  30 D, INTRAMUSCULAR; 50 MG, 1 IN 30 D, INTRAMUSCULAR
     Route: 030
     Dates: start: 20060217, end: 20060403
  3. SYNAGIS [Suspect]
     Indication: ANTIVIRAL PROPHYLAXIS
     Dosage: 1 IN 30 D, INTRAMUSCULAR; 32 MG, 1 IN  30 D, INTRAMUSCULAR; 50 MG, 1 IN 30 D, INTRAMUSCULAR
     Route: 030
     Dates: start: 20060217

REACTIONS (1)
  - OESOPHAGITIS [None]
